FAERS Safety Report 25735734 (Version 1)
Quarter: 2025Q3

REPORT INFORMATION
  Report Type: Spontaneous
  Country: US (occurrence: None)
  Receive Date: 20250828
  Receipt Date: 20250828
  Transmission Date: 20251020
  Serious: Yes (Hospitalization)
  Sender: FDA-CTU
  Company Number: None

PATIENT
  Age: 65 Year
  Sex: Male

DRUGS (7)
  1. ENVARSUS XR [Suspect]
     Active Substance: TACROLIMUS
     Indication: Transplant
     Dosage: FREQUENCY : DAILY;?
     Route: 048
     Dates: start: 20191008
  2. ENVARSUS XR [Suspect]
     Active Substance: TACROLIMUS
     Indication: Transplant
     Dosage: FREQUENCY : DAILY;?
     Route: 048
     Dates: start: 20190906
  3. AZITHROMYCIN [Concomitant]
     Active Substance: AZITHROMYCIN
  4. PREDNISONE [Concomitant]
     Active Substance: PREDNISONE
  5. FAMOTIDINE [Concomitant]
     Active Substance: FAMOTIDINE
  6. ATOVAQUONE [Concomitant]
     Active Substance: ATOVAQUONE
  7. ATORVASTATIN [Concomitant]
     Active Substance: ATORVASTATIN

REACTIONS (1)
  - Device related infection [None]

NARRATIVE: CASE EVENT DATE: 20250812
